FAERS Safety Report 9612709 (Version 1)
Quarter: 2013Q4

REPORT INFORMATION
  Report Type: Report from Study
  Country: FR (occurrence: FR)
  Receive Date: 20131010
  Receipt Date: 20131010
  Transmission Date: 20140711
  Serious: Yes (Hospitalization)
  Sender: FDA-Public Use
  Company Number: FR-ROCHE-1284599

PATIENT
  Sex: Female

DRUGS (3)
  1. BEVACIZUMAB [Suspect]
     Indication: OVARIAN CANCER
     Dosage: 6 COURSES
     Route: 065
  2. CARBOPLATIN [Concomitant]
     Indication: OVARIAN CANCER
     Route: 065
  3. PACLITAXEL [Concomitant]
     Indication: OVARIAN CANCER
     Route: 065

REACTIONS (1)
  - Lymphocele [Unknown]
